FAERS Safety Report 26176135 (Version 1)
Quarter: 2025Q4

REPORT INFORMATION
  Report Type: Spontaneous
  Country: US (occurrence: US)
  Receive Date: 20251218
  Receipt Date: 20251218
  Transmission Date: 20260117
  Serious: Yes (Other)
  Sender: MYLAN
  Company Number: US-MYLANLABS-2025M1106806

PATIENT
  Age: 17 Year
  Sex: Male

DRUGS (10)
  1. TETRABENAZINE [Suspect]
     Active Substance: TETRABENAZINE
     Indication: Dystonia
     Dosage: UNK
  2. DANTROLENE [Suspect]
     Active Substance: DANTROLENE
     Indication: Dystonia
     Dosage: UNK
  3. CLONAZEPAM [Suspect]
     Active Substance: CLONAZEPAM
     Indication: Dystonia
     Dosage: UNK
  4. BACLOFEN [Suspect]
     Active Substance: BACLOFEN
     Indication: Dystonia
     Dosage: UNK
  5. BENZTROPINE [Suspect]
     Active Substance: BENZTROPINE
     Indication: Dystonia
     Dosage: UNK
  6. TRIHEXYPHENIDYL [Suspect]
     Active Substance: TRIHEXYPHENIDYL
     Indication: Dystonia
     Dosage: UNK
  7. OLANZAPINE [Concomitant]
     Active Substance: OLANZAPINE
     Indication: Epilepsy
     Dosage: UNK
  8. OLANZAPINE [Concomitant]
     Active Substance: OLANZAPINE
     Dosage: UNK (TAPERED)
  9. RISPERIDONE [Concomitant]
     Active Substance: RISPERIDONE
     Indication: Epilepsy
     Dosage: UNK
  10. RISPERIDONE [Concomitant]
     Active Substance: RISPERIDONE
     Dosage: UNK (TAPERED)

REACTIONS (2)
  - Drug ineffective [Unknown]
  - Product prescribing issue [Unknown]
